FAERS Safety Report 9736302 (Version 1)
Quarter: 2013Q4

REPORT INFORMATION
  Report Type: Report from Study
  Country: GB (occurrence: GB)
  Receive Date: 20131206
  Receipt Date: 20131206
  Transmission Date: 20140711
  Serious: Yes (Other)
  Sender: FDA-Public Use
  Company Number: GB-ROCHE-1311911

PATIENT
  Age: 69 Year
  Sex: Female
  Weight: 111.1 kg

DRUGS (6)
  1. RANIBIZUMAB [Suspect]
     Indication: AGE-RELATED MACULAR DEGENERATION
     Dosage: 0.05MG/0.05ML
     Route: 050
     Dates: start: 20130919, end: 20130919
  2. RANIBIZUMAB [Suspect]
     Dosage: 0.05MG/0.05ML
     Route: 050
     Dates: start: 20131017, end: 20131017
  3. LOSARTAN [Concomitant]
     Route: 065
     Dates: start: 201104
  4. SIMVASTATIN [Concomitant]
     Route: 065
     Dates: start: 200207
  5. ASPIRIN [Concomitant]
     Route: 065
     Dates: start: 200312
  6. METFORMIN [Concomitant]
     Route: 065

REACTIONS (1)
  - Transient ischaemic attack [Recovering/Resolving]
